FAERS Safety Report 9278769 (Version 3)
Quarter: 2013Q2

REPORT INFORMATION
  Report Type: Report from Study
  Country: US (occurrence: US)
  Receive Date: 20130508
  Receipt Date: 20130627
  Transmission Date: 20140414
  Serious: Yes (Hospitalization, Other)
  Sender: FDA-Public Use
  Company Number: US-ABBOTT-13P-163-1084162-00

PATIENT
  Age: 44 Year
  Sex: Female
  Weight: 108.96 kg

DRUGS (4)
  1. HUMIRA [Suspect]
     Indication: PSORIASIS
     Dates: start: 201201, end: 201201
  2. HUMIRA [Suspect]
     Dates: end: 201302
  3. HUMIRA [Suspect]
     Dates: start: 2013
  4. SYNTHROID [Concomitant]
     Indication: HYPOTHYROIDISM

REACTIONS (5)
  - Cervical dysplasia [Recovered/Resolved]
  - Smear cervix abnormal [Unknown]
  - Psoriasis [Not Recovered/Not Resolved]
  - Cervicitis human papilloma virus [Unknown]
  - Vaginitis bacterial [Unknown]
